FAERS Safety Report 23843402 (Version 10)
Quarter: 2024Q4

REPORT INFORMATION
  Report Type: Spontaneous
  Country: IL (occurrence: IL)
  Receive Date: 20240510
  Receipt Date: 20241007
  Transmission Date: 20250115
  Serious: Yes (Hospitalization, Other)
  Sender: BAXTER
  Company Number: IL-BAXTER-2024BAX018029

PATIENT
  Age: 76 Year
  Sex: Male
  Weight: 77 kg

DRUGS (24)
  1. DOXORUBICIN HYDROCHLORIDE [Suspect]
     Active Substance: DOXORUBICIN HYDROCHLORIDE
     Indication: Diffuse large B-cell lymphoma
     Dosage: 90 MG/M2, C1D1, AS A PART OF R-CHOP REGIMEN, 3-WEEK CYCLE (21 DAYS)
     Route: 042
     Dates: start: 20240328, end: 20240328
  2. DOXORUBICIN HYDROCHLORIDE [Suspect]
     Active Substance: DOXORUBICIN HYDROCHLORIDE
     Dosage: 90 MG/M2, C2D1, AS A PART OF R-CHOP REGIMEN, 3-WEEK CYCLE (21 DAYS)
     Route: 042
     Dates: start: 20240418, end: 20240418
  3. DOXORUBICIN HYDROCHLORIDE [Suspect]
     Active Substance: DOXORUBICIN HYDROCHLORIDE
     Dosage: UNK, C3D1, AS A PART OF R-CHOP REGIMEN, 3-WEEK CYCLE (21 DAYS), ONGOING
     Route: 042
     Dates: start: 20240509
  4. CYCLOPHOSPHAMIDE [Suspect]
     Active Substance: CYCLOPHOSPHAMIDE
     Indication: Diffuse large B-cell lymphoma
     Dosage: 1350 MG/M2, C1D1, AS A PART OF R-CHOP REGIMEN, 3-WEEK CYCLE (21 DAYS)
     Route: 042
     Dates: start: 20240328, end: 20240328
  5. CYCLOPHOSPHAMIDE [Suspect]
     Active Substance: CYCLOPHOSPHAMIDE
     Dosage: 1350 MG/M2, C2D1, AS A PART OF R-CHOP REGIMEN, 3-WEEK CYCLE (21 DAYS)
     Route: 042
     Dates: start: 20240418, end: 20240418
  6. CYCLOPHOSPHAMIDE [Suspect]
     Active Substance: CYCLOPHOSPHAMIDE
     Dosage: UNK, C3D1, AS A PART OF R-CHOP REGIMEN, 3-WEEK CYCLE (21 DAYS), ONGOING
     Route: 042
     Dates: start: 20240509
  7. EPCORITAMAB [Suspect]
     Active Substance: EPCORITAMAB
     Indication: Diffuse large B-cell lymphoma
     Dosage: 0.16 MG PRIMING DOSE C1D1, QW
     Route: 058
     Dates: start: 20240328, end: 20240328
  8. EPCORITAMAB [Suspect]
     Active Substance: EPCORITAMAB
     Dosage: 0.8 MG INTERMEDIATE DOSE ON C1D8, WEEKLY
     Route: 058
     Dates: start: 20240404, end: 20240404
  9. EPCORITAMAB [Suspect]
     Active Substance: EPCORITAMAB
     Dosage: 48 MG, FULL DOSE ON C1D15, WEEKLY, (01 FULL DOSE PRIOR TO THE ONSET OF CRS)
     Route: 058
     Dates: start: 20240411, end: 20240411
  10. EPCORITAMAB [Suspect]
     Active Substance: EPCORITAMAB
     Dosage: 48 MG, C2D1 (2ND FULL DOSES PRIOR TO THE ONSET OF NEUTROPENIC FEVER)
     Route: 058
     Dates: start: 20240418, end: 20240418
  11. EPCORITAMAB [Suspect]
     Active Substance: EPCORITAMAB
     Dosage: 48 MG, C3D1 AND C3D8, QW
     Route: 058
     Dates: start: 20240509, end: 20240516
  12. EPCORITAMAB [Suspect]
     Active Substance: EPCORITAMAB
     Dosage: UNK, C3D15 ONWARDS, QW, ONGOING
     Route: 058
     Dates: start: 20240523
  13. RITUXIMAB [Suspect]
     Active Substance: RITUXIMAB
     Indication: Diffuse large B-cell lymphoma
     Dosage: 700 MG/M2 DOSE, C1, AS A PART OF R-CHOP REGIMEN, 3-WEEK CYCLE (21 DAYS)
     Route: 042
     Dates: start: 20240327, end: 20240327
  14. RITUXIMAB [Suspect]
     Active Substance: RITUXIMAB
     Dosage: 700 MG/M2 DOSE, C2D1, AS A PART OF R-CHOP REGIMEN, 3-WEEK CYCLE (21 DAYS)
     Route: 042
     Dates: start: 20240418, end: 20240418
  15. RITUXIMAB [Suspect]
     Active Substance: RITUXIMAB
     Dosage: 375 MG/M2, C3D1, 3-WEEK CYCLE (21 DAYS), AS A PART OF R-CHOP REGIMEN
     Route: 042
     Dates: start: 20240509, end: 20240509
  16. VINCRISTINE [Suspect]
     Active Substance: VINCRISTINE
     Indication: Diffuse large B-cell lymphoma
     Dosage: 2 MG/M2, C1D1, AS A PART OF R-CHOP REGIMEN, 3-WEEK CYCLE (21 DAYS)
     Route: 042
     Dates: start: 20240328, end: 20240328
  17. VINCRISTINE [Suspect]
     Active Substance: VINCRISTINE
     Dosage: 2 MG/M2, C2D1, AS A PART OF R-CHOP REGIMEN, 3-WEEK CYCLE (21 DAYS)
     Route: 042
     Dates: start: 20240418, end: 20240418
  18. VINCRISTINE [Suspect]
     Active Substance: VINCRISTINE
     Dosage: UNK, C3D1, AS A PART OF R-CHOP REGIMEN, 3-WEEK CYCLE (21 DAYS), ONGOING
     Route: 042
     Dates: start: 20240509
  19. PREDNISONE [Suspect]
     Active Substance: PREDNISONE
     Indication: Diffuse large B-cell lymphoma
     Dosage: UNK, C1-2, AS A PART OF R-CHOP REGIMEN
     Route: 065
  20. PREDNISONE [Suspect]
     Active Substance: PREDNISONE
     Dosage: UNK, AS A PART OF R-CHOP REGIMEN, START DATE:2024
     Route: 065
  21. ACETAMINOPHEN [Suspect]
     Active Substance: ACETAMINOPHEN
     Indication: Premedication
     Dosage: 1 G
     Route: 042
     Dates: start: 20240404, end: 20240404
  22. PROMETHAZINE HYDROCHLORIDE [Suspect]
     Active Substance: PROMETHAZINE HYDROCHLORIDE
     Indication: Premedication
     Dosage: 25 MG
     Route: 048
     Dates: start: 20240404, end: 20240404
  23. PROMETHAZINE HYDROCHLORIDE [Suspect]
     Active Substance: PROMETHAZINE HYDROCHLORIDE
     Dosage: 25 MG
     Route: 048
     Dates: start: 20240418, end: 20240418
  24. ACETAMINOPHEN [Suspect]
     Active Substance: ACETAMINOPHEN
     Indication: Premedication
     Dosage: 1 G
     Route: 042
     Dates: start: 20240418, end: 20240418

REACTIONS (4)
  - Cytokine release syndrome [Recovered/Resolved]
  - Pyrexia [Recovered/Resolved]
  - Pyrexia [Recovered/Resolved]
  - Febrile neutropenia [Recovered/Resolved]

NARRATIVE: CASE EVENT DATE: 20240411
